FAERS Safety Report 13772203 (Version 3)
Quarter: 2017Q4

REPORT INFORMATION
  Report Type: Spontaneous
  Country: JP (occurrence: JP)
  Receive Date: 20170720
  Receipt Date: 20171221
  Transmission Date: 20180320
  Serious: Yes (Hospitalization)
  Sender: FDA-Public Use
  Company Number: JP-BAYER-2017-136800

PATIENT
  Age: 79 Year
  Sex: Female
  Weight: 47.5 kg

DRUGS (3)
  1. MELOXICAM. [Concomitant]
     Active Substance: MELOXICAM
     Indication: BACK PAIN
     Dosage: UNK
  2. BAYASPIRIN 100 MG [Suspect]
     Active Substance: ASPIRIN
     Indication: MYOCARDIAL INFARCTION
     Dosage: DAILY DOSE 100 MG
     Route: 048
     Dates: start: 20101124
  3. MOBIC [Suspect]
     Active Substance: MELOXICAM
     Indication: BACK PAIN
     Dosage: DAILY DOSE 10 MG
     Route: 048
     Dates: start: 20120911, end: 20130329

REACTIONS (3)
  - Blood pressure decreased [Recovered/Resolved]
  - Melaena [Recovered/Resolved]
  - Large intestinal ulcer [Recovered/Resolved]

NARRATIVE: CASE EVENT DATE: 20130125
